FAERS Safety Report 11331783 (Version 1)
Quarter: 2015Q3

REPORT INFORMATION
  Report Type: Spontaneous
  Country: US (occurrence: US)
  Receive Date: 20150803
  Receipt Date: 20150803
  Transmission Date: 20151125
  Serious: Yes (Other)
  Sender: FDA-Public Use
  Company Number: US-ELI_LILLY_AND_COMPANY-US200804001124

PATIENT
  Age: 71 Year
  Sex: Male
  Weight: 108.84 kg

DRUGS (1)
  1. ZYPREXA [Suspect]
     Active Substance: OLANZAPINE
     Indication: PSYCHOTIC BEHAVIOUR
     Dosage: 20 MG, DAILY (1/D)
     Dates: start: 200708

REACTIONS (4)
  - Cardiac failure congestive [Unknown]
  - Verbal abuse [Unknown]
  - Weight increased [Unknown]
  - Amnesia [Unknown]

NARRATIVE: CASE EVENT DATE: 20080319
